FAERS Safety Report 8458357-0 (Version None)
Quarter: 2012Q2

REPORT INFORMATION
  Report Type: 
  Country: None (occurrence: None)
  Receive Date: 20120622
  Receipt Date: 20120618
  Transmission Date: 20120825
  Serious: No
  Sender: FDA-Public Use
  Company Number: US-BAYER-2012-061105

PATIENT

DRUGS (5)
  1. ALEVE (CAPLET) [Suspect]
     Indication: ORAL PAIN
     Route: 048
  2. ALEVE (CAPLET) [Suspect]
     Indication: PAIN IN JAW
  3. SINUS MEDICINE [Concomitant]
  4. IBUPROFEN (ADVIL) [Concomitant]
  5. ANALGESICS [Concomitant]

REACTIONS (2)
  - PAIN IN JAW [None]
  - ORAL PAIN [None]
